FAERS Safety Report 17986907 (Version 1)
Quarter: 2020Q3

REPORT INFORMATION
  Report Type: Spontaneous
  Country: US (occurrence: US)
  Receive Date: 20200707
  Receipt Date: 20200707
  Transmission Date: 20201103
  Serious: No
  Sender: FDA-Public Use
  Company Number: US-BION-008131

PATIENT
  Age: 48 Year
  Sex: Female
  Weight: 82.55 kg

DRUGS (3)
  1. CALCITRIOL UNKNOWN CAPSULE 0.25 MCG + 0.5 MCG [Suspect]
     Active Substance: CALCITRIOL
     Indication: THYROIDECTOMY
     Dosage: STRENGTH: 0.25 MCG + 0.5 MCG?START DATE OF THIS BOTTLE: 03?JUL?2019
     Route: 048
  2. SYNTHROID [Concomitant]
     Active Substance: LEVOTHYROXINE SODIUM
  3. CALCIUM [Concomitant]
     Active Substance: CALCIUM

REACTIONS (3)
  - Poor quality product administered [Not Recovered/Not Resolved]
  - Nausea [Recovered/Resolved]
  - Product odour abnormal [Unknown]
